FAERS Safety Report 9139924 (Version 1)
Quarter: 2013Q1

REPORT INFORMATION
  Report Type: Spontaneous
  Country: US (occurrence: US)
  Receive Date: 20130305
  Receipt Date: 20130305
  Transmission Date: 20140127
  Serious: No
  Sender: FDA-Public Use
  Company Number: US-009507513-1303USA001601

PATIENT
  Age: 32 Year
  Sex: Female

DRUGS (3)
  1. AFRIN NO DRIP SINUS [Suspect]
     Indication: NASAL CONGESTION
     Dosage: UNK, Q12H
     Route: 045
  2. AFRIN NO DRIP SINUS [Suspect]
     Indication: SENSATION OF PRESSURE
  3. AFRIN NO DRIP SINUS [Suspect]
     Indication: DYSPNOEA

REACTIONS (1)
  - Drug ineffective [Unknown]
